FAERS Safety Report 5631078-5 (Version None)
Quarter: 2008Q1

REPORT INFORMATION
  Report Type: 
  Country: None (occurrence: None)
  Receive Date: 20080219
  Receipt Date: 20080207
  Transmission Date: 20080703
  Serious: Yes (Other)
  Sender: FDA-Public Use
  Company Number: GB-PFIZER INC-2008012771

PATIENT
  Age: 82 Year
  Sex: Female

DRUGS (4)
  1. LINEZOLID [Suspect]
     Indication: INFECTION
     Route: 048
     Dates: start: 20060830, end: 20060913
  2. FUROSEMIDE [Concomitant]
     Route: 048
  3. LEVOTHYROXINE SODIUM [Concomitant]
     Route: 048
  4. TRAMADOL HCL [Concomitant]
     Route: 048

REACTIONS (3)
  - MACULAR DEGENERATION [None]
  - OPTIC NEUROPATHY [None]
  - VISION BLURRED [None]
